FAERS Safety Report 8823140 (Version 1)
Quarter: 2012Q4

REPORT INFORMATION
  Report Type: 
  Country: US (occurrence: US)
  Receive Date: 20121003
  Receipt Date: 20121003
  Transmission Date: 20130627
  Serious: Yes (Hospitalization, Other)
  Sender: FDA-Public Use
  Company Number: US-ROCHE-783982

PATIENT
  Sex: Female
  Weight: 47.67 kg

DRUGS (4)
  1. ACCUTANE [Suspect]
     Indication: ACNE
     Route: 065
  2. ACCUTANE [Suspect]
     Route: 065
     Dates: start: 1989, end: 1990
  3. ACCUTANE [Suspect]
     Route: 065
     Dates: start: 1992, end: 1995
  4. ACCUTANE [Suspect]
     Route: 065
     Dates: start: 1995, end: 1996

REACTIONS (6)
  - Inflammatory bowel disease [Unknown]
  - Crohn^s disease [Unknown]
  - Emotional distress [Unknown]
  - Irritable bowel syndrome [Unknown]
  - Anal fissure [Unknown]
  - Depression [Unknown]
